FAERS Safety Report 9757412 (Version 2)
Quarter: 2013Q4

REPORT INFORMATION
  Report Type: Spontaneous
  Country: JP (occurrence: JP)
  Receive Date: 20131214
  Receipt Date: 20131219
  Transmission Date: 20140711
  Serious: Yes (Other)
  Sender: FDA-Public Use
  Company Number: JP-009507513-1312JPN005801

PATIENT
  Age: 42 Year
  Sex: Female

DRUGS (1)
  1. ESLAX INTRAVENOUS 50MG/5.0ML [Suspect]
     Dosage: UNK
     Route: 042
     Dates: start: 201301, end: 201301

REACTIONS (1)
  - Rhabdomyolysis [Unknown]
